FAERS Safety Report 24275908 (Version 1)
Quarter: 2024Q3

REPORT INFORMATION
  Report Type: Spontaneous
  Country: CA (occurrence: CA)
  Receive Date: 20240903
  Receipt Date: 20240903
  Transmission Date: 20241017
  Serious: Yes (Hospitalization, Other)
  Sender: GILEAD
  Company Number: CA-GILEAD-2024-0685936

PATIENT
  Age: 5 Month
  Sex: Female

DRUGS (10)
  1. VEKLURY [Suspect]
     Active Substance: REMDESIVIR
     Indication: Product used for unknown indication
     Dosage: UNK
     Route: 065
  2. ACETAMINOPHEN [Concomitant]
     Active Substance: ACETAMINOPHEN
  3. CLONIDINE [Concomitant]
     Active Substance: CLONIDINE
  4. DEXMEDETOMIDINE [Concomitant]
     Active Substance: DEXMEDETOMIDINE
  5. ENOXAPARIN [Concomitant]
     Active Substance: ENOXAPARIN
  6. FUROSEMIDE [Concomitant]
     Active Substance: FUROSEMIDE
  7. MIDAZOLAM [Concomitant]
     Active Substance: MIDAZOLAM
  8. MORPHINE [Concomitant]
     Active Substance: MORPHINE
  9. NYSTATIN [Concomitant]
     Active Substance: NYSTATIN
  10. OMEPRAZOLE [Concomitant]
     Active Substance: OMEPRAZOLE

REACTIONS (2)
  - Liver injury [Recovering/Resolving]
  - Hypertransaminasaemia [Recovering/Resolving]
